FAERS Safety Report 7202485-4 (Version None)
Quarter: 2010Q4

REPORT INFORMATION
  Report Type: 
  Country: None (occurrence: None)
  Receive Date: 20101229
  Receipt Date: 20101217
  Transmission Date: 20110411
  Serious: Yes (Hospitalization)
  Sender: FDA-Public Use
  Company Number: B0691215A

PATIENT
  Age: 4 Year
  Sex: Male

DRUGS (2)
  1. FLIXONASE [Suspect]
     Indication: RHINITIS
     Route: 045
     Dates: start: 20101129, end: 20101216
  2. CHINESE MEDICINE [Concomitant]
     Indication: COUGH
     Route: 065

REACTIONS (4)
  - ARTHRALGIA [None]
  - COUGH [None]
  - DYSSTASIA [None]
  - MYOSITIS [None]
